FAERS Safety Report 19766011 (Version 2)
Quarter: 2021Q4

REPORT INFORMATION
  Report Type: Spontaneous
  Country: US (occurrence: US)
  Receive Date: 20210831
  Receipt Date: 20211011
  Transmission Date: 20220303
  Serious: No
  Sender: FDA-Public Use
  Company Number: US-BOEHRINGERINGELHEIM-2021-BI-124059

PATIENT
  Age: 54 Year
  Sex: Male

DRUGS (1)
  1. COMBIVENT [Suspect]
     Active Substance: ALBUTEROL SULFATE\IPRATROPIUM BROMIDE
     Indication: Product used for unknown indication
     Dosage: AS NEEDED, INHALATION SPRAY

REACTIONS (10)
  - Dyspnoea [Not Recovered/Not Resolved]
  - Discomfort [Not Recovered/Not Resolved]
  - Product dose omission issue [Unknown]
  - Loss of consciousness [Unknown]
  - Fall [Unknown]
  - Chest pain [Unknown]
  - Intentional product use issue [Unknown]
  - Device malfunction [Unknown]
  - Drug delivery system malfunction [Unknown]
  - Head injury [Unknown]

NARRATIVE: CASE EVENT DATE: 20210827
